FAERS Safety Report 9133459 (Version 2)
Quarter: 2013Q1

REPORT INFORMATION
  Report Type: Spontaneous
  Country: GB (occurrence: GB)
  Receive Date: 20130301
  Receipt Date: 20130307
  Transmission Date: 20140127
  Serious: Yes (Other)
  Sender: FDA-Public Use
  Company Number: GB-ABBOTT-13P-167-1054865-00

PATIENT
  Sex: Male

DRUGS (4)
  1. NORVIR [Suspect]
     Indication: HIV INFECTION
     Dosage: DOSAGE FORM: UNSPECIFIED
  2. PREZISTA [Suspect]
     Indication: HIV INFECTION
  3. INTELENCE [Suspect]
     Indication: HIV INFECTION
  4. RALTEGRAVIR [Suspect]
     Indication: HIV INFECTION
     Dosage: DOSAGE FORM: UNSPECIFIED

REACTIONS (1)
  - Glomerular filtration rate decreased [Unknown]
